FAERS Safety Report 10620302 (Version 1)
Quarter: 2014Q4

REPORT INFORMATION
  Report Type: Spontaneous
  Country: US (occurrence: None)
  Receive Date: 20141201
  Receipt Date: 20141201
  Transmission Date: 20150529
  Serious: Yes (Disabling, Other)
  Sender: FDA-Public Use
  Company Number: None

PATIENT
  Age: 72 Year
  Sex: Female
  Weight: 38.56 kg

DRUGS (1)
  1. SOLU-MEDROL [Suspect]
     Active Substance: METHYLPREDNISOLONE SODIUM SUCCINATE
     Indication: SCAN WITH CONTRAST
     Dates: start: 20140918, end: 20140918

REACTIONS (9)
  - Scratch [None]
  - Urticaria [None]
  - Arthropod bite [None]
  - Gait disturbance [None]
  - Contusion [None]
  - Rash macular [None]
  - Erythema [None]
  - Herpes virus infection [None]
  - Skin atrophy [None]

NARRATIVE: CASE EVENT DATE: 20140918
